FAERS Safety Report 25722108 (Version 1)
Quarter: 2025Q3

REPORT INFORMATION
  Report Type: Spontaneous
  Country: GB (occurrence: GB)
  Receive Date: 20250825
  Receipt Date: 20250825
  Transmission Date: 20251021
  Serious: Yes (Other)
  Sender: OTSUKA
  Company Number: None

PATIENT
  Age: 25 Year
  Sex: Male

DRUGS (2)
  1. ARIPIPRAZOLE [Suspect]
     Active Substance: ARIPIPRAZOLE
     Indication: Product used for unknown indication
     Dosage: 5 MG, QD
     Route: 065
  2. VORTIOXETINE [Concomitant]
     Active Substance: VORTIOXETINE
     Indication: Persistent depressive disorder
     Route: 065
     Dates: start: 20241128, end: 20250227

REACTIONS (1)
  - Aphantasia [Not Recovered/Not Resolved]

NARRATIVE: CASE EVENT DATE: 20250225
